FAERS Safety Report 19262638 (Version 1)
Quarter: 2021Q2

REPORT INFORMATION
  Report Type: Spontaneous
  Country: US (occurrence: US)
  Receive Date: 20210517
  Receipt Date: 20210517
  Transmission Date: 20210717
  Serious: Yes (Other)
  Sender: FDA-Public Use
  Company Number: US-DRREDDYS-USA/USA/21/0135420

PATIENT
  Age: 57 Year
  Sex: Female

DRUGS (2)
  1. OMEPRAZOLE. [Suspect]
     Active Substance: OMEPRAZOLE
     Indication: BREAST CANCER STAGE IV
  2. RANITIDINE. [Suspect]
     Active Substance: RANITIDINE
     Indication: BREAST CANCER STAGE IV

REACTIONS (1)
  - Subacute cutaneous lupus erythematosus [Recovering/Resolving]
